FAERS Safety Report 9507663 (Version 1)
Quarter: 2013Q3

REPORT INFORMATION
  Report Type: Spontaneous
  Country: US (occurrence: US)
  Receive Date: 20130909
  Receipt Date: 20130909
  Transmission Date: 20140515
  Serious: Yes (Disabling)
  Sender: FDA-Public Use
  Company Number: US-SANOFI-AVENTIS-2013SA088395

PATIENT
  Sex: 0

DRUGS (1)
  1. PLAVIX [Suspect]
     Route: 065

REACTIONS (3)
  - Injury [Unknown]
  - Pain [Unknown]
  - Physical disability [Unknown]
